FAERS Safety Report 7878930 (Version 2)
Quarter: 2012Q4

REPORT INFORMATION
  Report Type: 
  Country: DE (occurrence: JP)
  Receive Date: 20110330
  Receipt Date: 20121205
  Transmission Date: 20130627
  Serious: Yes (Death, Other)
  Sender: FDA-Public Use
  Company Number: JP-SPECTRUM PHARMACEUTICALS, INC.-11-Z-JP-00025

PATIENT

DRUGS (4)
  1. ZEVALIN [Suspect]
     Indication: LYMPHOMA
     Dosage: UNK
     Route: 042
     Dates: start: 20100720, end: 20100720
  2. ZEVALIN [Suspect]
     Dosage: UNK
     Route: 042
     Dates: start: 20100713, end: 20100713
  3. RITUXIMAB [Suspect]
     Indication: LYMPHOMA
     Dosage: 250 mg/m2, single
     Route: 042
     Dates: start: 20100720, end: 20100720
  4. RITUXIMAB [Suspect]
     Dosage: 250 mg/m2, single
     Route: 042
     Dates: start: 20100713, end: 20100713

REACTIONS (3)
  - Cardiac failure [Fatal]
  - Platelet count decreased [Unknown]
  - Neutropenia [Unknown]
